FAERS Safety Report 18199114 (Version 6)
Quarter: 2022Q3

REPORT INFORMATION
  Report Type: Report from Study
  Country: CA (occurrence: CA)
  Receive Date: 20200826
  Receipt Date: 20220928
  Transmission Date: 20221027
  Serious: Yes (Hospitalization, Other)
  Sender: FDA-Public Use
  Company Number: PHHY2017CA099766

PATIENT
  Age: 41 Year
  Sex: Female
  Weight: 70 kg

DRUGS (40)
  1. XOLAIR [Suspect]
     Active Substance: OMALIZUMAB
     Indication: Asthma
     Dosage: 1 DF, BIW
     Route: 058
     Dates: start: 20080905, end: 20090812
  2. XOLAIR [Suspect]
     Active Substance: OMALIZUMAB
     Dosage: 1 DF, BIW
     Route: 058
     Dates: start: 20180116
  3. XOLAIR [Suspect]
     Active Substance: OMALIZUMAB
     Dosage: UNK
     Route: 058
     Dates: start: 20180131
  4. XOLAIR [Suspect]
     Active Substance: OMALIZUMAB
     Dosage: UNK
     Route: 058
     Dates: start: 20180214
  5. XOLAIR [Suspect]
     Active Substance: OMALIZUMAB
     Dosage: 1 DF, BIW
     Route: 058
     Dates: start: 20180410
  6. XOLAIR [Suspect]
     Active Substance: OMALIZUMAB
     Dosage: 1 DF, BIW
     Route: 058
     Dates: start: 20180605
  7. XOLAIR [Suspect]
     Active Substance: OMALIZUMAB
     Dosage: 300 MG, BIW
     Route: 058
     Dates: start: 20190128
  8. XOLAIR [Suspect]
     Active Substance: OMALIZUMAB
     Dosage: 1 DF, BIW
     Route: 058
     Dates: start: 20190410
  9. XOLAIR [Suspect]
     Active Substance: OMALIZUMAB
     Dosage: 1 DF, BIW
     Route: 058
     Dates: start: 20190508
  10. XOLAIR [Suspect]
     Active Substance: OMALIZUMAB
     Dosage: 1 DF, BIW
     Route: 058
     Dates: start: 20190814
  11. XOLAIR [Suspect]
     Active Substance: OMALIZUMAB
     Dosage: 1 DF, BIW
     Route: 058
     Dates: start: 20200108
  12. XOLAIR [Suspect]
     Active Substance: OMALIZUMAB
     Dosage: 1 DF, BIW
     Route: 058
     Dates: start: 20200205
  13. XOLAIR [Suspect]
     Active Substance: OMALIZUMAB
     Dosage: 1 DF, BIW
     Route: 058
  14. XOLAIR [Suspect]
     Active Substance: OMALIZUMAB
     Dosage: 225 MG
     Route: 058
  15. XOLAIR [Suspect]
     Active Substance: OMALIZUMAB
     Dosage: 225 MG, BIW
     Route: 058
  16. RIZATRIPTAN BENZOATE [Suspect]
     Active Substance: RIZATRIPTAN BENZOATE
     Indication: Migraine
     Dosage: UNK (DOSE BEFORE XOLAIR, ANOTHER DOSE 2 HOURS LATER)
     Route: 065
     Dates: start: 20190703
  17. RIZATRIPTAN BENZOATE [Suspect]
     Active Substance: RIZATRIPTAN BENZOATE
     Indication: Hypoaesthesia
     Dosage: UNK (THIRD DOSE)
     Route: 065
     Dates: start: 20190704
  18. ALMOTRIPTAN [Suspect]
     Active Substance: ALMOTRIPTAN
     Indication: Migraine
     Dosage: UNK
     Route: 065
     Dates: start: 20190717
  19. ALMOTRIPTAN [Suspect]
     Active Substance: ALMOTRIPTAN
     Indication: Hypoaesthesia
  20. SUMATRIPTAN [Suspect]
     Active Substance: SUMATRIPTAN
     Indication: Migraine
     Dosage: UNK
     Route: 065
     Dates: start: 20190731
  21. SUMATRIPTAN [Suspect]
     Active Substance: SUMATRIPTAN
     Indication: Hypoaesthesia
  22. ZOLMITRIPTAN [Suspect]
     Active Substance: ZOLMITRIPTAN
     Indication: Migraine
     Dosage: UNK
     Route: 065
     Dates: start: 20190814
  23. ZOLMITRIPTAN [Suspect]
     Active Substance: ZOLMITRIPTAN
     Indication: Hypoaesthesia
  24. FROVA [Suspect]
     Active Substance: FROVATRIPTAN SUCCINATE
     Indication: Migraine
     Dosage: 1 DF, Q12H (3 DOSES OVER 36 HOURS)
     Route: 065
  25. AMERGE [Suspect]
     Active Substance: NARATRIPTAN HYDROCHLORIDE
     Indication: Migraine
     Dosage: UNK
     Route: 065
  26. PREDNISONE [Concomitant]
     Active Substance: PREDNISONE
     Indication: Asthma
     Dosage: 1 DF (5 MG), QD
     Route: 048
  27. PREDNISONE [Concomitant]
     Active Substance: PREDNISONE
     Dosage: 5 MG, (EVERY 2 DAYS SINCE THE LAST 5 TO 6 DAYS)
     Route: 065
  28. PREDNISONE [Concomitant]
     Active Substance: PREDNISONE
     Dosage: 40 MG, (FOR 4 DAYS)
     Route: 065
  29. PREDNISONE [Concomitant]
     Active Substance: PREDNISONE
     Dosage: 30 MG, QD
     Route: 065
  30. PREDNISONE [Concomitant]
     Active Substance: PREDNISONE
     Dosage: 5 MG, QD
     Route: 065
  31. PREDNISONE [Concomitant]
     Active Substance: PREDNISONE
     Dosage: UNK
     Route: 065
     Dates: start: 20171209
  32. VENTOLIN [Concomitant]
     Active Substance: ALBUTEROL SULFATE
     Indication: Product used for unknown indication
     Dosage: PRN
     Route: 065
  33. VENTOLIN [Concomitant]
     Active Substance: ALBUTEROL SULFATE
     Dosage: (4 TIMES A WEEK)
     Route: 065
  34. ZENHALE [Concomitant]
     Active Substance: FORMOTEROL FUMARATE\MOMETASONE FUROATE
     Indication: Asthma
     Dosage: 4 DF, BID
  35. ASMANEX [Concomitant]
     Active Substance: MOMETASONE FUROATE
     Indication: Asthma
     Dosage: 1 DF, QD
  36. SINGULAIR [Concomitant]
     Active Substance: MONTELUKAST SODIUM
     Indication: Asthma
     Dosage: 1 DF, QD
     Route: 048
  37. UNIPHYL [Concomitant]
     Active Substance: THEOPHYLLINE ANHYDROUS
     Indication: Asthma
     Dosage: 1 DF, QD
     Route: 048
  38. AMOXICILLIN\CLAVULANATE POTASSIUM [Concomitant]
     Active Substance: AMOXICILLIN\CLAVULANATE POTASSIUM
     Indication: Bronchitis
     Dosage: UNK
     Route: 065
  39. AMOXICILLIN\CLAVULANATE POTASSIUM [Concomitant]
     Active Substance: AMOXICILLIN\CLAVULANATE POTASSIUM
     Indication: Sinusitis
  40. AMOXICILLIN\CLAVULANATE POTASSIUM [Concomitant]
     Active Substance: AMOXICILLIN\CLAVULANATE POTASSIUM
     Indication: Asthma

REACTIONS (56)
  - Pneumonia [Unknown]
  - Bronchial obstruction [Unknown]
  - Burns third degree [Unknown]
  - Pain [Recovered/Resolved]
  - Respiratory tract infection [Unknown]
  - Optic neuritis [Unknown]
  - Migraine [Unknown]
  - Vision blurred [Unknown]
  - Middle insomnia [Unknown]
  - White blood cell count increased [Unknown]
  - Sputum discoloured [Unknown]
  - Productive cough [Unknown]
  - Malaise [Unknown]
  - Pyrexia [Unknown]
  - Dyspnoea [Unknown]
  - Insomnia [Unknown]
  - Asthenia [Unknown]
  - Wheezing [Unknown]
  - Rhinorrhoea [Recovering/Resolving]
  - Nasal oedema [Unknown]
  - Nasal congestion [Unknown]
  - Lung disorder [Unknown]
  - Vomiting [Unknown]
  - Nasal discharge discolouration [Unknown]
  - Temperature intolerance [Unknown]
  - Mobility decreased [Recovered/Resolved]
  - Weight decreased [Unknown]
  - Feeling abnormal [Unknown]
  - Ear pain [Unknown]
  - Seasonal allergy [Unknown]
  - Dust allergy [Unknown]
  - Flushing [Unknown]
  - Bronchitis [Recovering/Resolving]
  - Chest discomfort [Unknown]
  - Hypoaesthesia [Recovering/Resolving]
  - Hyperhidrosis [Unknown]
  - Ear discomfort [Unknown]
  - Nervousness [Unknown]
  - Tinnitus [Unknown]
  - Throat tightness [Unknown]
  - Diarrhoea [Unknown]
  - Tooth infection [Unknown]
  - Sinusitis [Recovering/Resolving]
  - Weight increased [Recovering/Resolving]
  - Nasopharyngitis [Unknown]
  - Cough [Unknown]
  - Somnolence [Unknown]
  - Headache [Recovered/Resolved]
  - Injection site bruising [Recovering/Resolving]
  - Injection site swelling [Recovered/Resolved]
  - Nausea [Unknown]
  - Fatigue [Unknown]
  - Asthma [Recovering/Resolving]
  - Drug intolerance [Unknown]
  - Incorrect dose administered [Unknown]
  - Therapy partial responder [Unknown]

NARRATIVE: CASE EVENT DATE: 20161208
